FAERS Safety Report 17097989 (Version 1)
Quarter: 2019Q4

REPORT INFORMATION
  Report Type: Spontaneous
  Country: CA (occurrence: CA)
  Receive Date: 20191202
  Receipt Date: 20191202
  Transmission Date: 20200122
  Serious: Yes (Other)
  Sender: FDA-Public Use
  Company Number: CA-PFIZER INC-2019513602

PATIENT
  Age: 44 Year
  Sex: Female

DRUGS (23)
  1. BETADERM A [Concomitant]
     Indication: SKIN DISORDER
     Dosage: 1 DF, 1X/DAY (APPLICATION)
  2. D3 VITAMIINI [Concomitant]
     Dosage: 50000 IU, WEEKLY
     Route: 048
  3. PMS-CLONAZEPAM [Concomitant]
     Active Substance: CLONAZEPAM
     Dosage: 0.25 MG, 1X/DAY (AT BED TIME)
     Route: 048
  4. RANITIDINE HCL [Concomitant]
     Active Substance: RANITIDINE HYDROCHLORIDE
     Dosage: 300 MG, 1X/DAY (AT SLEEP TIME)
     Route: 048
  5. RELPAX [Concomitant]
     Active Substance: ELETRIPTAN HYDROBROMIDE
     Dosage: 20 MG, 1X/DAY (WHEN NECESSARY)
     Route: 048
  6. SULFASALAZINE. [Suspect]
     Active Substance: SULFASALAZINE
     Dosage: 3 G, 1X/DAY
     Route: 048
  7. ATASOL 15 [Concomitant]
     Dosage: 1 DF, 2X/DAY (325MG-15 MG-30MG TABLET), 2X/DAY)
     Route: 048
  8. MEZAVANT [Concomitant]
     Active Substance: MESALAMINE
     Dosage: 2.4 G, 2X/DAY
     Route: 048
  9. AVENTYL [Concomitant]
     Active Substance: NORTRIPTYLINE HYDROCHLORIDE
     Dosage: 25 MG, 1X/DAY (AT SLEEP TIME)
     Route: 048
  10. IMITREX [Concomitant]
     Active Substance: SUMATRIPTAN SUCCINATE
     Dosage: 100 MG, 1X/DAY
     Route: 048
  11. AVENTYL [Concomitant]
     Active Substance: NORTRIPTYLINE HYDROCHLORIDE
     Dosage: 10 MG, 1X/DAY, (AT SLEEP TIME (QHS))
     Route: 048
  12. ENTYVIO [Concomitant]
     Active Substance: VEDOLIZUMAB
     Dosage: 300 MG, WEEKLY
  13. DESIPRAMINE [Concomitant]
     Active Substance: DESIPRAMINE
     Dosage: UNK
  14. PREDNISONE. [Concomitant]
     Active Substance: PREDNISONE
     Dosage: UNK
  15. CIPRALEX MELTZ [ESCITALOPRAM OXALATE] [Concomitant]
     Dosage: 10 MG, 1X/DAY
     Route: 048
  16. COACTIFED EXPECTORANT [Concomitant]
     Dosage: 5 ML, 3X/DAY (30-10-2/5)
     Route: 048
  17. TECTA [Concomitant]
     Active Substance: PANTOPRAZOLE MAGNESIUM
     Dosage: 40 MG, 1X/DAY
     Route: 048
  18. SULFASALAZINE. [Suspect]
     Active Substance: SULFASALAZINE
     Indication: CROHN^S DISEASE
     Dosage: 3 G, 1X/DAY
     Route: 048
  19. FERROUS FUMARATE [Concomitant]
     Active Substance: FERROUS FUMARATE
     Dosage: 300 MG, 1X/DAY
     Route: 048
  20. CALCIUM [Concomitant]
     Active Substance: CALCIUM
     Dosage: UNK
  21. SULFASALAZINE. [Suspect]
     Active Substance: SULFASALAZINE
     Dosage: 1.5 G, 1X/DAY
     Route: 048
     Dates: start: 201803
  22. CELESTODERM [Concomitant]
     Active Substance: BETAMETHASONE VALERATE
     Dosage: 1 DF, 2X/DAY  (APPLICATION)
  23. IMURAN [Concomitant]
     Active Substance: AZATHIOPRINE
     Dosage: 150 MG, 1X/DAY
     Route: 048

REACTIONS (12)
  - Colitis ulcerative [Not Recovered/Not Resolved]
  - Communication disorder [Unknown]
  - Thyroxine free decreased [Unknown]
  - Rectal haemorrhage [Not Recovered/Not Resolved]
  - Asthenia [Not Recovered/Not Resolved]
  - Blood thyroid stimulating hormone decreased [Unknown]
  - Intentional product use issue [Unknown]
  - Intentional dose omission [Unknown]
  - Feeling guilty [Unknown]
  - Dizziness [Unknown]
  - Iron deficiency anaemia [Unknown]
  - Crohn^s disease [Unknown]

NARRATIVE: CASE EVENT DATE: 20180820
